FAERS Safety Report 16977017 (Version 1)
Quarter: 2019Q4

REPORT INFORMATION
  Report Type: Report from Study
  Country: None (occurrence: CA)
  Receive Date: 20191030
  Receipt Date: 20191030
  Transmission Date: 20200122
  Serious: Yes (Hospitalization, Other)
  Sender: FDA-Public Use
  Company Number: CA-ABBVIE-19K-028-2979410-00

PATIENT
  Sex: Male

DRUGS (2)
  1. HUMIRA [Suspect]
     Active Substance: ADALIMUMAB
     Route: 058
     Dates: start: 201812
  2. HUMIRA [Suspect]
     Active Substance: ADALIMUMAB
     Indication: ANKYLOSING SPONDYLITIS
     Route: 058
     Dates: start: 20120928, end: 201811

REACTIONS (8)
  - Hip arthroplasty [Not Recovered/Not Resolved]
  - Arthritis [Unknown]
  - Fibromyalgia [Unknown]
  - Hidradenitis [Not Recovered/Not Resolved]
  - Rheumatoid arthritis [Not Recovered/Not Resolved]
  - Abdominal discomfort [Unknown]
  - Pyrexia [Unknown]
  - Pain [Unknown]
